FAERS Safety Report 4876779-1 (Version None)
Quarter: 2005Q4

REPORT INFORMATION
  Report Type: 
  Country: None (occurrence: None)
  Receive Date: 20051206
  Receipt Date: 20050802
  Transmission Date: 20060501
  Serious: No
  Sender: FDA-Public Use
  Company Number: USA0508104341

PATIENT
  Age: 51 Year
  Sex: Female

DRUGS (2)
  1. CYMBALTA [Suspect]
     Indication: DEPRESSION
     Dosage: 60 MG IN THE MORNING
     Dates: start: 20050101, end: 20050801
  2. TRANZINE (CHLORPROMAZINE HYDROCHLORIDE) [Concomitant]

REACTIONS (16)
  - ANGER [None]
  - CHEST DISCOMFORT [None]
  - CRYING [None]
  - DIZZINESS [None]
  - DRUG INEFFECTIVE [None]
  - DYSPNOEA [None]
  - FATIGUE [None]
  - FEELING JITTERY [None]
  - HEADACHE [None]
  - ILL-DEFINED DISORDER [None]
  - INCREASED APPETITE [None]
  - INSOMNIA [None]
  - MEMORY IMPAIRMENT [None]
  - PANIC ATTACK [None]
  - SOMNOLENCE [None]
  - SPEECH DISORDER [None]
